FAERS Safety Report 9116774 (Version 2)
Quarter: 2013Q2

REPORT INFORMATION
  Report Type: Spontaneous
  Country: US (occurrence: US)
  Receive Date: 20130225
  Receipt Date: 20130507
  Transmission Date: 20140414
  Serious: No
  Sender: FDA-Public Use
  Company Number: US-009507513-1302USA011015

PATIENT
  Age: 15 Year
  Sex: Female
  Weight: 80.27 kg

DRUGS (1)
  1. IMPLANON [Suspect]
     Indication: CONTRACEPTION
     Dosage: 1 ROD
     Route: 059
     Dates: start: 20130208, end: 20130208

REACTIONS (3)
  - Device difficult to use [Recovered/Resolved]
  - Medical device complication [Unknown]
  - Medical device complication [Unknown]
